FAERS Safety Report 9674590 (Version 1)
Quarter: 2013Q4

REPORT INFORMATION
  Report Type: Spontaneous
  Country: US (occurrence: None)
  Receive Date: 20131106
  Receipt Date: 20131106
  Transmission Date: 20140711
  Serious: Yes (Other)
  Sender: FDA-Public Use
  Company Number: None

PATIENT
  Age: 50 Year
  Sex: Male
  Weight: 108.86 kg

DRUGS (17)
  1. LEVAQUIN [Suspect]
     Indication: ACUTE SINUSITIS
     Dosage: 1 PILL EVERY DAY
     Route: 048
     Dates: start: 20131004, end: 20131009
  2. LEVAQUIN [Suspect]
     Indication: SINUSITIS
     Dosage: 1 PILL EVERY DAY
     Route: 048
     Dates: start: 20131004, end: 20131009
  3. LEVAQUIN [Suspect]
     Dosage: 1 PILL EVERY DAY
     Route: 048
     Dates: start: 20131004, end: 20131009
  4. LEVAQUIN [Suspect]
     Dosage: 1 PILL EVERY DAY
     Route: 048
     Dates: start: 20131004, end: 20131009
  5. LEVAQUIN [Suspect]
     Dosage: 1 PILL EVERY DAY
     Route: 048
     Dates: start: 20131004, end: 20131009
  6. LEVAQUIN [Suspect]
     Indication: BACK PAIN
     Dosage: 1 PILL EVERY DAY
     Route: 048
     Dates: start: 20131004, end: 20131009
  7. LEVAQUIN [Suspect]
     Dosage: 1 PILL EVERY DAY
     Route: 048
     Dates: start: 20131004, end: 20131009
  8. LEVAQUIN [Suspect]
     Indication: BLOOD CHOLESTEROL
     Dosage: 1 PILL EVERY DAY
     Route: 048
     Dates: start: 20131004, end: 20131009
  9. FLUOXETINE [Concomitant]
  10. LEVOTHYROXINE [Concomitant]
  11. METFORMIN [Concomitant]
  12. GLYBURIDE [Concomitant]
  13. IBUPROFEN [Concomitant]
  14. DIAZEPAM [Concomitant]
  15. HYDROCODONE [Concomitant]
  16. CLARITIN [Concomitant]
  17. MUISENEX [Concomitant]

REACTIONS (4)
  - Rash [None]
  - Urticaria [None]
  - Scratch [None]
  - Pruritus [None]
